FAERS Safety Report 4582291-X (Version None)
Quarter: 2005Q1

REPORT INFORMATION
  Report Type: 
  Country: None (occurrence: None)
  Receive Date: 20050214
  Receipt Date: 20050204
  Transmission Date: 20050727
  Serious: Yes (Death, Hospitalization)
  Sender: FDA-Public Use
  Company Number: FR-AMGEN-UK111589

PATIENT
  Age: 56 Year
  Sex: Female
  Weight: 61 kg

DRUGS (4)
  1. NEULASTA [Suspect]
     Indication: CHEMOTHERAPY
     Route: 058
     Dates: start: 20041025, end: 20050104
  2. FARMORUBICIN [Suspect]
     Route: 042
     Dates: start: 20041025, end: 20050103
  3. TAXOTERE [Suspect]
     Route: 042
     Dates: start: 20041025, end: 20050103
  4. EPREX [Concomitant]
     Route: 065
     Dates: start: 20050103

REACTIONS (12)
  - ANAEMIA [None]
  - BACTERIAL SEPSIS [None]
  - BLOOD CULTURE POSITIVE [None]
  - ESCHERICHIA BACTERAEMIA [None]
  - FEBRILE BONE MARROW APLASIA [None]
  - GASTROINTESTINAL HAEMORRHAGE [None]
  - HEPATIC FAILURE [None]
  - HEPATIC LESION [None]
  - PROTEUS INFECTION [None]
  - SEPTIC SHOCK [None]
  - SHOCK HAEMORRHAGIC [None]
  - STREPTOCOCCAL BACTERAEMIA [None]
